FAERS Safety Report 4686655-5 (Version None)
Quarter: 2005Q2

REPORT INFORMATION
  Report Type: 
  Country: None (occurrence: None)
  Receive Date: 20050606
  Receipt Date: 20050524
  Transmission Date: 20051028
  Serious: Yes (Other)
  Sender: FDA-Public Use
  Company Number: SGBI-2005-00233

PATIENT
  Age: 35 Year
  Sex: Male

DRUGS (1)
  1. MIDODRINE HCL [Suspect]

REACTIONS (1)
  - SPERM COUNT DECREASED [None]
